FAERS Safety Report 8773653 (Version 1)
Quarter: 2012Q4

REPORT INFORMATION
  Report Type: 
  Country: ES (occurrence: ES)
  Receive Date: 20120907
  Receipt Date: 20120907
  Transmission Date: 20130627
  Serious: Yes (Life-Threatening)
  Sender: FDA-Public Use
  Company Number: ES-009507513-2012SP001556

PATIENT

DRUGS (4)
  1. BRIDION [Suspect]
     Indication: NEUROMUSCULAR BLOCKADE REVERSAL
     Dosage: 4 mg/kg, Once
     Route: 042
     Dates: start: 20111121, end: 20111121
  2. SEVOFLURANE [Concomitant]
     Indication: ANAESTHESIA
     Dosage: UNK
     Route: 055
     Dates: start: 20111121, end: 20111121
  3. FENTANYL [Concomitant]
     Indication: ANALGESIC THERAPY
     Dosage: UNK
     Route: 042
     Dates: start: 20111121, end: 20111121
  4. ULTIVA [Concomitant]
     Indication: ANALGESIC THERAPY
     Dosage: UNK
     Route: 042
     Dates: start: 20111121, end: 20111121

REACTIONS (2)
  - Musculoskeletal stiffness [Recovered/Resolved]
  - Off label use [Unknown]
